FAERS Safety Report 9122305 (Version 2)
Quarter: 2013Q1

REPORT INFORMATION
  Report Type: Spontaneous
  Country: SE (occurrence: SE)
  Receive Date: 20130227
  Receipt Date: 20130304
  Transmission Date: 20140127
  Serious: Yes (Other)
  Sender: FDA-Public Use
  Company Number: SE-JNJFOC-20130212600

PATIENT
  Age: 47 Year
  Sex: Female

DRUGS (4)
  1. REMICADE [Suspect]
     Indication: PSORIATIC ARTHROPATHY
     Route: 042
  2. REMICADE [Suspect]
     Indication: PSORIATIC ARTHROPATHY
     Route: 042
     Dates: start: 20121214
  3. METOJECT [Concomitant]
     Indication: PSORIATIC ARTHROPATHY
     Route: 065
     Dates: start: 201301
  4. METOJECT [Concomitant]
     Indication: PSORIATIC ARTHROPATHY
     Route: 065
     Dates: end: 201212

REACTIONS (7)
  - Hypersensitivity [Recovered/Resolved]
  - Infusion related reaction [Recovering/Resolving]
  - Erythema [Recovering/Resolving]
  - Palpitations [Recovered/Resolved]
  - Rash erythematous [Recovering/Resolving]
  - Dyspnoea [Recovered/Resolved]
  - Dysphonia [Recovering/Resolving]
